FAERS Safety Report 24253182 (Version 1)
Quarter: 2024Q3

REPORT INFORMATION
  Report Type: Other
  Country: US (occurrence: US)
  Receive Date: 20240827
  Receipt Date: 20240827
  Transmission Date: 20241016
  Serious: Yes (Other)
  Sender: AVONDALE PHARMACEUTICALS
  Company Number: US-Avondale Pharmaceuticals, LLC-2160899

PATIENT
  Age: 94 Year
  Sex: Female

DRUGS (3)
  1. SSKI [Suspect]
     Active Substance: POTASSIUM IODIDE
     Indication: Hyperthyroidism
     Route: 065
  2. PROPYLTHIOURACIL [Suspect]
     Active Substance: PROPYLTHIOURACIL
     Route: 065
  3. PREDNISONE [Suspect]
     Active Substance: PREDNISONE
     Route: 065

REACTIONS (1)
  - Drug ineffective [Unknown]
